FAERS Safety Report 25632038 (Version 1)
Quarter: 2025Q3

REPORT INFORMATION
  Report Type: Spontaneous
  Country: GB (occurrence: GB)
  Receive Date: 20250801
  Receipt Date: 20250801
  Transmission Date: 20251020
  Serious: Yes (Hospitalization, Other)
  Sender: CHEPLAPHARM
  Company Number: None

PATIENT
  Age: 88 Year
  Sex: Female

DRUGS (9)
  1. HYDROXYUREA [Suspect]
     Active Substance: HYDROXYUREA
  2. LACTULOSE [Concomitant]
     Active Substance: LACTULOSE
     Dosage: LACTULOSE 3.1-3.7 G / 5 ML ORAL SOLUTION?DAILY DOSE: 30 MILLILITRE
  3. ACETAMINOPHEN [Concomitant]
     Active Substance: ACETAMINOPHEN
     Dosage: DAILY DOSE: 4 GRAM
  4. ASPIRIN [Concomitant]
     Active Substance: ASPIRIN
     Dosage: DAILY DOSE: 75 MILLIGRAM
  5. Altraplen Compact Daily hazel chocolate and vanilla [Concomitant]
     Dosage: ALTRAPLEN COMPACT DAILY LIQUID HAZEL CHOCOLATE ONE TO BE TAKEN DAILY AS PER DIETITIAN?ALTRAPLEN C...
  6. ALFACALCIDOL [Concomitant]
     Active Substance: ALFACALCIDOL
     Dosage: DAILY DOSE: 250 NANOGRAM
  7. ALTRASHOT [Concomitant]
     Dosage: ALTRASHOT 120 ML BOTTLES (FLAVOUR NOT SPECIFIED) ONE TO BE TAKEN ONCE DAILY AS PER?DIETITIAN
  8. HYPROMELLOSES [Concomitant]
     Active Substance: HYPROMELLOSES
  9. CHOLECALCIFEROL [Concomitant]
     Active Substance: CHOLECALCIFEROL

REACTIONS (1)
  - Hyponatraemia [Recovered/Resolved]
